FAERS Safety Report 8657814 (Version 3)
Quarter: 2013Q4

REPORT INFORMATION
  Report Type: Spontaneous
  Country: US (occurrence: US)
  Receive Date: 20120710
  Receipt Date: 20131205
  Transmission Date: 20140711
  Serious: Yes (Other)
  Sender: FDA-Public Use
  Company Number: US-PFIZER INC-2012162547

PATIENT
  Age: 64 Year
  Sex: Male

DRUGS (2)
  1. CHANTIX [Suspect]
     Dosage: UNK
     Dates: start: 201001
  2. CHANTIX [Suspect]
     Dosage: 0.5 MG, UNK
     Route: 048
     Dates: start: 20100308, end: 20100830

REACTIONS (6)
  - Suicide attempt [Unknown]
  - Depression [Unknown]
  - Aggression [Unknown]
  - Abnormal behaviour [Unknown]
  - Insomnia [Unknown]
  - Mental disorder [Unknown]
